FAERS Safety Report 7243452-4 (Version None)
Quarter: 2011Q1

REPORT INFORMATION
  Report Type: 
  Country: None (occurrence: None)
  Receive Date: 20110119
  Receipt Date: 20110119
  Transmission Date: 20110831
  Serious: Yes (Hospitalization)
  Sender: FDA-Public Use
  Company Number: None

PATIENT
  Sex: Female
  Weight: 63.9 kg

DRUGS (2)
  1. CARBOPLATIN [Suspect]
     Dosage: 370 MG
  2. TAXOL [Suspect]
     Dosage: 227 MG

REACTIONS (4)
  - WHITE BLOOD CELL COUNT DECREASED [None]
  - FEBRILE NEUTROPENIA [None]
  - DIARRHOEA [None]
  - CLOSTRIDIUM TEST POSITIVE [None]
